FAERS Safety Report 5227059-6 (Version None)
Quarter: 2007Q1

REPORT INFORMATION
  Report Type: 
  Country: None (occurrence: None)
  Receive Date: 20070201
  Receipt Date: 20070201
  Transmission Date: 20070707
  Serious: Yes (Hospitalization)
  Sender: FDA-Public Use
  Company Number: None

PATIENT
  Age: 52 Year
  Sex: Male
  Weight: 86.4 kg

DRUGS (2)
  1. SIMVASTATIN [Suspect]
     Indication: HYPERLIPIDAEMIA
     Dosage: 80MG DAILY PO
     Route: 048
     Dates: start: 20040124, end: 20070108
  2. WARFARIN SODIUM [Suspect]
     Indication: CEREBROVASCULAR ACCIDENT
     Dosage: 5MG DAILY PO
     Route: 048
     Dates: start: 20070102, end: 20070108

REACTIONS (1)
  - INTERNATIONAL NORMALISED RATIO INCREASED [None]
